FAERS Safety Report 6022799-3 (Version None)
Quarter: 2008Q4

REPORT INFORMATION
  Report Type: 
  Country: None (occurrence: None)
  Receive Date: 20081230
  Receipt Date: 20081217
  Transmission Date: 20090506
  Serious: Yes (Other)
  Sender: FDA-Public Use
  Company Number: US-ELI_LILLY_AND_COMPANY-US200812004485

PATIENT
  Sex: Female

DRUGS (2)
  1. CYMBALTA [Suspect]
     Indication: DEPRESSION
     Dosage: 60 MG, UNK
     Dates: start: 20060101
  2. CYMBALTA [Suspect]
     Dosage: 90 MG, UNK

REACTIONS (3)
  - ECZEMA [None]
  - RASH [None]
  - SKIN EXFOLIATION [None]
